FAERS Safety Report 12449160 (Version 2)
Quarter: 2016Q2

REPORT INFORMATION
  Report Type: Spontaneous
  Country: MX (occurrence: MX)
  Receive Date: 20160608
  Receipt Date: 20160609
  Transmission Date: 20160815
  Serious: Yes (Other)
  Sender: FDA-Public Use
  Company Number: MX-ROCHE-1715013

PATIENT
  Age: 54 Year
  Sex: Male

DRUGS (2)
  1. AVASTIN [Suspect]
     Active Substance: BEVACIZUMAB
     Indication: MACULAR OEDEMA
     Dosage: 100MG/4ML
     Route: 050
     Dates: start: 20160210, end: 20160210
  2. AVASTIN [Suspect]
     Active Substance: BEVACIZUMAB
     Indication: DIABETIC RETINOPATHY

REACTIONS (4)
  - Suspected transmission of an infectious agent via product [Unknown]
  - Off label use [Unknown]
  - Suspected counterfeit product [Unknown]
  - Endophthalmitis [Recovered/Resolved with Sequelae]

NARRATIVE: CASE EVENT DATE: 20160210
